FAERS Safety Report 8620293-4 (Version None)
Quarter: 2012Q3

REPORT INFORMATION
  Report Type: 
  Country: None (occurrence: None)
  Receive Date: 20120824
  Receipt Date: 20120816
  Transmission Date: 20120928
  Serious: Yes (Other)
  Sender: FDA-Public Use
  Company Number: AU-B.I. PHARMACEUTICALS,INC./RIDGEFIELD-2012-AU-01345AU

PATIENT
  Sex: Female
  Weight: 50 kg

DRUGS (12)
  1. PRADAXA [Suspect]
     Indication: CARDIAC FIBRILLATION
     Dosage: 220 MG
     Dates: start: 20111001
  2. CREON [Concomitant]
     Indication: PANCREATIC DISORDER
     Dosage: 75000 U
  3. LANOXIN [Concomitant]
     Indication: CARDIAC FIBRILLATION
  4. CRAMPEZE [Concomitant]
     Indication: MUSCLE SPASMS
  5. LOVAZA [Concomitant]
     Indication: ARTHRITIS
  6. BUPRENORPHINE [Concomitant]
     Dosage: 1.4286 MCG
  7. METOPROLOL TARTRATE [Concomitant]
     Dosage: 150 MG
  8. ACIASTA [Concomitant]
     Indication: OSTEOPOROSIS
  9. MACUVISION [Concomitant]
     Indication: MACULAR DEGENERATION
  10. BUPRENORPHINE [Concomitant]
     Indication: PAIN
     Dosage: 0.7143 MCG
  11. LANOXIN [Concomitant]
     Indication: PALPITATIONS
     Dosage: 62.5 MG
  12. CALCIUM [Concomitant]
     Indication: OSTEOPOROSIS

REACTIONS (5)
  - SOMNOLENCE [None]
  - BLOOD PRESSURE FLUCTUATION [None]
  - ARTHRALGIA [None]
  - ANKLE FRACTURE [None]
  - JOINT SWELLING [None]
